FAERS Safety Report 18512590 (Version 1)
Quarter: 2020Q4

REPORT INFORMATION
  Report Type: Report from Study
  Country: CA (occurrence: CA)
  Receive Date: 20201117
  Receipt Date: 20201117
  Transmission Date: 20210114
  Serious: Yes (Other)
  Sender: FDA-Public Use
  Company Number: CA-TAKEDA-CA202021864

PATIENT
  Age: 43 Year
  Sex: Female

DRUGS (3)
  1. IRON [Concomitant]
     Active Substance: IRON
     Indication: PRODUCT USED FOR UNKNOWN INDICATION
     Route: 065
  2. HUMAN NORMAL IMMUNOGLOBULIN; LIQUID 20 [Suspect]
     Active Substance: HUMAN IMMUNOGLOBULIN G
     Dosage: 10 GRAM, 1X/WEEK
     Route: 058
     Dates: start: 20201004
  3. HUMAN NORMAL IMMUNOGLOBULIN; LIQUID 20 [Suspect]
     Active Substance: HUMAN IMMUNOGLOBULIN G
     Indication: PRIMARY IMMUNODEFICIENCY SYNDROME
     Dosage: 10 GRAM, 1X/WEEK
     Route: 058
     Dates: start: 20200605

REACTIONS (10)
  - Nervous system disorder [Unknown]
  - Infusion site swelling [Unknown]
  - Mastocytosis [Recovering/Resolving]
  - Infusion site pain [Unknown]
  - Malaise [Unknown]
  - Infusion site bruising [Unknown]
  - Sinusitis [Recovering/Resolving]
  - Fatigue [Unknown]
  - Blood pressure increased [Recovering/Resolving]
  - Infusion site haemorrhage [Unknown]

NARRATIVE: CASE EVENT DATE: 2020
